FAERS Safety Report 12742856 (Version 3)
Quarter: 2016Q4

REPORT INFORMATION
  Report Type: Spontaneous
  Country: JP (occurrence: JP)
  Receive Date: 20160914
  Receipt Date: 20161018
  Transmission Date: 20170207
  Serious: Yes (Hospitalization)
  Sender: FDA-Public Use
  Company Number: JP-JNJFOC-20160909794

PATIENT
  Sex: Male

DRUGS (1)
  1. ZYTIGA [Suspect]
     Active Substance: ABIRATERONE ACETATE
     Indication: HORMONE-REFRACTORY PROSTATE CANCER
     Dosage: 250 MG PER 4 TIMES PER DAY.
     Route: 048
     Dates: start: 2016, end: 2016

REACTIONS (3)
  - Blood testosterone increased [Unknown]
  - Prostate cancer [Unknown]
  - Vomiting [Unknown]

NARRATIVE: CASE EVENT DATE: 2016
